FAERS Safety Report 7436003-2 (Version None)
Quarter: 2011Q2

REPORT INFORMATION
  Report Type: 
  Country: None (occurrence: None)
  Receive Date: 20110425
  Receipt Date: 20110411
  Transmission Date: 20111010
  Serious: Yes (Hospitalization)
  Sender: FDA-Public Use
  Company Number: IT-BAYER-2011-031333

PATIENT
  Age: 81 Year
  Sex: Female

DRUGS (6)
  1. ZESTORETIC [Concomitant]
     Dosage: DAILY DOSE 10 MG
     Route: 048
  2. SIMVASTATIN [Concomitant]
     Dosage: DAILY DOSE 10 MG
     Route: 048
  3. ASPIRIN [Suspect]
     Indication: PROPHYLAXIS
     Dosage: 100 MG, QD
     Route: 048
     Dates: start: 20080101, end: 20110318
  4. LANSOX [Concomitant]
     Dosage: DAILY DOSE 15 MG
     Route: 048
  5. CARDURA [Concomitant]
     Dosage: DAILY DOSE 1 DF
     Route: 048
  6. NEBIVOLOL HCL [Concomitant]
     Dosage: DAILY DOSE 1 DF
     Route: 048

REACTIONS (2)
  - MICROCYTIC ANAEMIA [None]
  - GASTRITIS [None]
